FAERS Safety Report 7082248-3 (Version None)
Quarter: 2010Q4

REPORT INFORMATION
  Report Type: 
  Country: None (occurrence: None)
  Receive Date: 20101104
  Receipt Date: 20101026
  Transmission Date: 20110411
  Serious: Yes (Hospitalization)
  Sender: FDA-Public Use
  Company Number: US-BIOGENIDEC-2010BI008796

PATIENT
  Age: 54 Year
  Sex: Male

DRUGS (1)
  1. TYSABRI [Suspect]
     Indication: MULTIPLE SCLEROSIS
     Route: 042
     Dates: start: 20061113

REACTIONS (6)
  - ABASIA [None]
  - CELLULITIS [None]
  - MEMORY IMPAIRMENT [None]
  - MONOPARESIS [None]
  - MULTIPLE SCLEROSIS RELAPSE [None]
  - OPPORTUNISTIC INFECTION [None]
